FAERS Safety Report 6221746-9 (Version None)
Quarter: 2009Q2

REPORT INFORMATION
  Report Type: 
  Country: None (occurrence: None)
  Receive Date: 20090608
  Receipt Date: 20090602
  Transmission Date: 20091009
  Serious: Yes (Hospitalization)
  Sender: FDA-Public Use
  Company Number: 2009SP010354

PATIENT
  Age: 71 Year
  Sex: Male
  Weight: 66.8 kg

DRUGS (4)
  1. TEMOZOLOMIDE [Suspect]
     Indication: GLIOBLASTOMA MULTIFORME
     Dosage: 340 MG; PO, 340 MG; PO
     Route: 048
     Dates: start: 20090409, end: 20090413
  2. TEMOZOLOMIDE [Suspect]
     Indication: GLIOBLASTOMA MULTIFORME
     Dosage: 340 MG; PO, 340 MG; PO
     Route: 048
     Dates: start: 20080603
  3. TEMOZOLOMIDE [Suspect]
  4. TEMOZOLOMIDE [Suspect]

REACTIONS (2)
  - CEREBROVASCULAR ACCIDENT [None]
  - ISCHAEMIC CEREBRAL INFARCTION [None]
